FAERS Safety Report 18123437 (Version 1)
Quarter: 2020Q3

REPORT INFORMATION
  Report Type: Spontaneous
  Country: NL (occurrence: BE)
  Receive Date: 20200807
  Receipt Date: 20200807
  Transmission Date: 20201103
  Serious: Yes (Hospitalization)
  Sender: FDA-Public Use
  Company Number: BE-FRESENIUS KABI-FK202008060

PATIENT
  Age: 61 Year
  Sex: Male
  Weight: 102 kg

DRUGS (10)
  1. IRINOTECAN (MANUFACTURER UNKNOWN) [Suspect]
     Active Substance: IRINOTECAN
     Dosage: 399 MG, EVERY 2 WEEKS
     Route: 042
     Dates: start: 20180321, end: 20180417
  2. IRINOTECAN (MANUFACTURER UNKNOWN) [Suspect]
     Active Substance: IRINOTECAN
     Indication: COLORECTAL CANCER METASTATIC
     Dosage: 399 MG, EVERY 2 WEEKS
     Route: 042
     Dates: start: 20180508
  3. MOXONIDINE [Concomitant]
     Active Substance: MOXONIDINE
     Indication: PRODUCT USED FOR UNKNOWN INDICATION
     Dosage: UNK
     Route: 065
     Dates: start: 20171129
  4. LERCANIDIPINE HYDROCHLORIDE [Concomitant]
     Active Substance: LERCANIDIPINE HYDROCHLORIDE
     Indication: PRODUCT USED FOR UNKNOWN INDICATION
     Dosage: UNK
     Route: 065
     Dates: start: 20171121
  5. BISOPROLOL FUMARATE. [Concomitant]
     Active Substance: BISOPROLOL FUMARATE
     Indication: PRODUCT USED FOR UNKNOWN INDICATION
     Dosage: UNK
     Route: 065
     Dates: start: 20171121
  6. FLUOROURACIL. [Suspect]
     Active Substance: FLUOROURACIL
     Indication: COLORECTAL CANCER METASTATIC
     Dosage: 885.6 MG INTRAVENOUS (IV) BOLUS AND 5313.4 MG IV INFUSION EVERY TWO WEEKS
     Route: 042
     Dates: start: 20180321, end: 20180417
  7. FOLINIC ACID [Suspect]
     Active Substance: LEUCOVORIN
     Dosage: 443 MG, EVERY 2 WEEKS
     Route: 042
     Dates: start: 20180321, end: 20180417
  8. FOLINIC ACID [Suspect]
     Active Substance: LEUCOVORIN
     Indication: COLORECTAL CANCER METASTATIC
     Dosage: 443 MG, EVERY 2 WEEKS
     Route: 042
     Dates: start: 20180508
  9. HYDROCHLOROTHIAZIDE/TELMISARTAN [Concomitant]
     Active Substance: HYDROCHLOROTHIAZIDE\TELMISARTAN
     Indication: PRODUCT USED FOR UNKNOWN INDICATION
     Dosage: UNK
     Route: 065
     Dates: start: 20171127
  10. FLUOROURACIL. [Suspect]
     Active Substance: FLUOROURACIL
     Dosage: 885.6 MG INTRAVENOUS (IV) BOLUS AND 5313.4 MG IV INFUSION EVERY TWO WEEKS
     Route: 042
     Dates: start: 20180508

REACTIONS (1)
  - Pyelonephritis [Recovered/Resolved]

NARRATIVE: CASE EVENT DATE: 20180503
